FAERS Safety Report 7398075-3 (Version None)
Quarter: 2011Q2

REPORT INFORMATION
  Report Type: 
  Country: None (occurrence: None)
  Receive Date: 20110406
  Receipt Date: 20110404
  Transmission Date: 20111010
  Serious: Yes (Other)
  Sender: FDA-Public Use
  Company Number: CN-NAPPMUNDI-USA-2003-0010704

PATIENT
  Age: 24 Year
  Sex: Female

DRUGS (1)
  1. POVIDONE IODINE TOPICAL SOLUTION  (SIMILAR TO ANDA 10-288) [Suspect]
     Indication: PREOPERATIVE CARE
     Dosage: UNK, SEE TEXT
     Route: 061

REACTIONS (3)
  - BURNING SENSATION [None]
  - CHEMICAL BURN OF SKIN [None]
  - PAIN [None]
